FAERS Safety Report 7730739-1 (Version None)
Quarter: 2011Q3

REPORT INFORMATION
  Report Type: 
  Country: None (occurrence: None)
  Receive Date: 20110906
  Receipt Date: 20110823
  Transmission Date: 20111222
  Serious: Yes (Hospitalization)
  Sender: FDA-Public Use
  Company Number: CH-GLAXOSMITHKLINE-B0742073A

PATIENT
  Age: 50 Year
  Sex: Female

DRUGS (9)
  1. NOVALGIN [Concomitant]
     Route: 048
  2. OXYCODONE HCL [Concomitant]
     Route: 048
  3. OXYCONTIN [Concomitant]
     Route: 048
  4. ZANTAC [Suspect]
     Indication: PRODUCT USED FOR UNKNOWN INDICATION
     Route: 042
     Dates: start: 20110801, end: 20110801
  5. NEXIUM [Concomitant]
     Route: 048
  6. PREDNISONE [Concomitant]
  7. ZOLPIDEM [Concomitant]
     Route: 048
  8. IRBESARTAN AND HYDROCHLOROTHIAZIDE [Concomitant]
     Indication: HYPERTENSION
     Route: 048
  9. IMAZOL (CLOTRIMAZOLE/HEXAMIDINE ISETIONATE) [Concomitant]
     Route: 061

REACTIONS (2)
  - MYALGIA [None]
  - MUSCULOSKELETAL PAIN [None]
